FAERS Safety Report 19367208 (Version 1)
Quarter: 2021Q2

REPORT INFORMATION
  Report Type: Spontaneous
  Country: CN (occurrence: CN)
  Receive Date: 20210602
  Receipt Date: 20210602
  Transmission Date: 20210717
  Serious: Yes (Other)
  Sender: FDA-Public Use
  Company Number: CN-BAUSCH-BL-2021-018614

PATIENT
  Age: 10 Year
  Sex: Male

DRUGS (4)
  1. TROPICAMIDE EYE DROPS [Suspect]
     Active Substance: TROPICAMIDE
     Indication: REFRACTION DISORDER
     Route: 047
     Dates: start: 20210319, end: 20210319
  2. TROPICAMIDE EYE DROPS [Suspect]
     Active Substance: TROPICAMIDE
     Route: 047
     Dates: start: 20210401, end: 20210401
  3. RACEANISODAMINE [Concomitant]
     Indication: REFRACTION DISORDER
     Route: 047
     Dates: start: 20210319, end: 20210521
  4. SODIUM HYALURONATE [Concomitant]
     Active Substance: HYALURONATE SODIUM
     Indication: REFRACTION DISORDER
     Route: 047
     Dates: start: 20210319, end: 20210521

REACTIONS (2)
  - Eye pruritus [Recovered/Resolved]
  - Conjunctivitis [Recovered/Resolved]

NARRATIVE: CASE EVENT DATE: 20210319
